FAERS Safety Report 8958884 (Version 1)
Quarter: 2012Q4

REPORT INFORMATION
  Report Type: 
  Country: PT (occurrence: PT)
  Receive Date: 20121211
  Receipt Date: 20121211
  Transmission Date: 20130627
  Serious: Yes (Death, Life-Threatening, Hospitalization)
  Sender: FDA-Public Use
  Company Number: PT-B.I. PHARMACEUTICALS,INC./RIDGEFIELD-2012-EU-05349PO

PATIENT
  Age: 82 Year
  Sex: Male

DRUGS (5)
  1. PRADAXA [Suspect]
     Dosage: 220 mg
     Route: 048
     Dates: start: 20121013
  2. ASPIRIN [Suspect]
     Indication: ISCHAEMIC STROKE
     Route: 048
     Dates: start: 201209
  3. ROSUVASTATIN [Concomitant]
     Indication: ISCHAEMIC STROKE
     Dates: start: 201209
  4. DIGOXIN [Concomitant]
     Dates: start: 20121013
  5. ANTIHYPERTENSIVE MEDICATION (UNDEFINED) [Concomitant]
     Indication: ISCHAEMIC STROKE
     Dates: start: 201209

REACTIONS (2)
  - Pneumonia [Fatal]
  - Haemorrhage intracranial [Recovered/Resolved]
